FAERS Safety Report 11857705 (Version 1)
Quarter: 2015Q4

REPORT INFORMATION
  Report Type: Spontaneous
  Country: CA (occurrence: None)
  Receive Date: 20151221
  Receipt Date: 20151221
  Transmission Date: 20160305
  Serious: No
  Sender: FDA-Public Use
  Company Number: None

PATIENT
  Age: 32 Year
  Sex: Female
  Weight: 106.6 kg

DRUGS (1)
  1. URSIDIOL LIVER MEDICATION URSIDIOL 300MG [Suspect]
     Active Substance: URSODIOL
     Indication: CHOLESTASIS OF PREGNANCY
     Route: 048

REACTIONS (5)
  - Maternal exposure during pregnancy [None]
  - Cough [None]
  - Pruritus [None]
  - Headache [None]
  - Back pain [None]

NARRATIVE: CASE EVENT DATE: 20150121
